FAERS Safety Report 6169860-0 (Version None)
Quarter: 2009Q2

REPORT INFORMATION
  Report Type: 
  Country: None (occurrence: None)
  Receive Date: 20090428
  Receipt Date: 20090219
  Transmission Date: 20091009
  Serious: Yes (Other)
  Sender: FDA-Public Use
  Company Number: JP-PFIZER INC-2009159053

PATIENT
  Sex: Male
  Weight: 58.9 kg

DRUGS (11)
  1. ZYVOX [Suspect]
     Indication: PNEUMONIA STAPHYLOCOCCAL
     Dosage: 600 MG, 2X/DAY
     Route: 042
     Dates: start: 20090111, end: 20090114
  2. HYDROCORTONE FOSFAT [Concomitant]
     Dosage: UNK
     Route: 042
     Dates: start: 20090103, end: 20090116
  3. DIAZEPAM [Concomitant]
     Dates: start: 20090111
  4. MEROPEN [Concomitant]
     Dosage: UNK
     Route: 042
     Dates: start: 20090102, end: 20090217
  5. GASTER [Concomitant]
     Dosage: UNK
     Route: 042
     Dates: start: 20090102, end: 20090109
  6. IMMUNOGLOBULIN HUMAN NORMAL [Concomitant]
     Route: 042
     Dates: start: 20090102, end: 20090104
  7. MINOPEN [Concomitant]
     Dosage: UNK
     Route: 042
     Dates: start: 20090102, end: 20090107
  8. ELASPOL [Concomitant]
     Route: 042
     Dates: start: 20090102, end: 20090108
  9. FOY [Concomitant]
     Route: 042
     Dates: start: 20090102, end: 20090111
  10. PREDONINE [Concomitant]
     Route: 042
     Dates: start: 20090108, end: 20090109
  11. PREDONINE [Concomitant]
     Dosage: UNK
     Route: 048
     Dates: start: 20090110, end: 20090211

REACTIONS (2)
  - APLASIA PURE RED CELL [None]
  - GASTRIC ULCER HAEMORRHAGE [None]
